FAERS Safety Report 7638007-3 (Version None)
Quarter: 2011Q3

REPORT INFORMATION
  Report Type: 
  Country: None (occurrence: None)
  Receive Date: 20110720
  Receipt Date: 20110705
  Transmission Date: 20111222
  Serious: Yes (Other)
  Sender: FDA-Public Use
  Company Number: GER/UKI/11/0018938

PATIENT
  Age: 69 Year
  Sex: Male

DRUGS (2)
  1. DONEPEZIL HCL [Suspect]
     Indication: DEMENTIA ALZHEIMER'S TYPE
     Dosage: 10 MG, ORAL
     Route: 048
     Dates: start: 20101202, end: 20110617
  2. ASPIRIN [Concomitant]

REACTIONS (4)
  - DEPRESSION [None]
  - SUICIDAL IDEATION [None]
  - DRUG INTERACTION [None]
  - DIZZINESS [None]
